FAERS Safety Report 4864957-7 (Version None)
Quarter: 2005Q4

REPORT INFORMATION
  Report Type: 
  Country: None (occurrence: None)
  Receive Date: 20051214
  Receipt Date: 20051122
  Transmission Date: 20060501
  Serious: Yes (Other)
  Sender: FDA-Public Use
  Company Number: 200511852BBE

PATIENT
  Age: 38 Year
  Sex: Female
  Weight: 74 kg

DRUGS (6)
  1. GAMUNEX [Suspect]
     Indication: IMMUNODEFICIENCY COMMON VARIABLE
     Dosage: 40 G, TOTAL DAILY, INTRAVENOUS
     Route: 042
     Dates: start: 20040319
  2. DILAUDID [Concomitant]
  3. GABAPENTIN [Concomitant]
  4. MS CONTIN [Concomitant]
  5. SULCRATE [Concomitant]
  6. XYLOCAINE TOPICAL FILM [Concomitant]

REACTIONS (2)
  - ARTHRALGIA [None]
  - MYALGIA [None]
